FAERS Safety Report 14242290 (Version 1)
Quarter: 2017Q4

REPORT INFORMATION
  Report Type: Spontaneous
  Country: US (occurrence: US)
  Receive Date: 20171201
  Receipt Date: 20171201
  Transmission Date: 20180321
  Serious: No
  Sender: FDA-Public Use
  Company Number: US-PFIZER INC-2017511662

PATIENT
  Age: 55 Year
  Sex: Female
  Weight: 72 kg

DRUGS (1)
  1. CHANTIX [Suspect]
     Active Substance: VARENICLINE TARTRATE
     Indication: SMOKING CESSATION THERAPY
     Dosage: 1 DF, 1X/DAY
     Route: 048
     Dates: start: 20171120

REACTIONS (3)
  - Drug dose omission [Unknown]
  - Feeling jittery [Recovering/Resolving]
  - Malaise [Unknown]
